FAERS Safety Report 4975059-3 (Version None)
Quarter: 2006Q2

REPORT INFORMATION
  Report Type: 
  Country: None (occurrence: None)
  Receive Date: 20060418
  Receipt Date: 20060410
  Transmission Date: 20061013
  Serious: Yes (Life-Threatening, Hospitalization)
  Sender: FDA-Public Use
  Company Number: GB-ROCHE-444406

PATIENT
  Age: 35 Year
  Sex: Male
  Weight: 163.6 kg

DRUGS (2)
  1. XENICAL [Suspect]
     Indication: OBESITY
     Route: 048
     Dates: start: 20020615
  2. XENICAL [Suspect]
     Route: 048
     Dates: start: 20060329

REACTIONS (1)
  - SUPRAVENTRICULAR TACHYCARDIA [None]
